FAERS Safety Report 8965831 (Version 1)
Quarter: 2012Q4

REPORT INFORMATION
  Report Type: 
  Country: CN (occurrence: CN)
  Receive Date: 20121217
  Receipt Date: 20121217
  Transmission Date: 20130627
  Serious: Yes (Other)
  Sender: FDA-Public Use
  Company Number: CN-SANOFI-AVENTIS-2012SA091132

PATIENT
  Age: 81 Year
  Sex: Male
  Weight: 69 kg

DRUGS (3)
  1. ENOXAPARIN SODIUM [Suspect]
     Indication: VALVULAR HEART DISEASE NOS
     Route: 065
     Dates: start: 20110713, end: 20110718
  2. ENOXAPARIN SODIUM [Suspect]
     Indication: DEEP VEIN THROMBOSIS
     Route: 065
     Dates: start: 20110713, end: 20110718
  3. ENOXAPARIN SODIUM [Suspect]
     Indication: CONGESTIVE HEART FAILURE
     Route: 065
     Dates: start: 20110713, end: 20110718

REACTIONS (3)
  - Bone marrow failure [Recovering/Resolving]
  - Thrombocytopenia [Recovering/Resolving]
  - Melaena [Recovering/Resolving]
